FAERS Safety Report 5426748-8 (Version None)
Quarter: 2007Q3

REPORT INFORMATION
  Report Type: 
  Country: None (occurrence: None)
  Receive Date: 20070827
  Receipt Date: 20070815
  Transmission Date: 20080115
  Serious: Yes (Hospitalization)
  Sender: FDA-Public Use
  Company Number: US-PFIZER INC-2007068154

PATIENT
  Sex: Female
  Weight: 75.3 kg

DRUGS (1)
  1. BEXTRA [Suspect]
     Indication: ARTHRITIS
     Dates: start: 20020101, end: 20020101

REACTIONS (4)
  - ASTHMA [None]
  - CARDIAC DISORDER [None]
  - HEADACHE [None]
  - SENSORY DISTURBANCE [None]
